FAERS Safety Report 8654593 (Version 2)
Quarter: 2012Q4

REPORT INFORMATION
  Report Type: Report from Study
  Country: GB (occurrence: GB)
  Receive Date: 20120709
  Receipt Date: 20120918
  Transmission Date: 20130627
  Serious: Yes (Death, Other)
  Sender: FDA-Public Use
  Company Number: GB-ROCHE-1082988

PATIENT
  Sex: Female
  Weight: 90 kg

DRUGS (14)
  1. MABTHERA [Suspect]
     Indication: PRODUCT USED FOR UNKNOWN INDICATION
  2. METHOTREXATE [Concomitant]
     Route: 065
  3. ATORVASTATIN [Concomitant]
  4. HYDROXIN [Concomitant]
  5. ALENDRONATE [Concomitant]
  6. BUMETANIDE [Concomitant]
  7. PENICILLIN V [Concomitant]
  8. ADCAL [Concomitant]
  9. FOLIC ACID [Concomitant]
  10. PREDNISOLONE [Concomitant]
     Route: 065
  11. LANOCONAZOLE [Concomitant]
  12. SERETIDE [Concomitant]
  13. SALBUTAMOL [Concomitant]
  14. AMOXICILLIN\CLAVULANATE POTASSIUM [Concomitant]

REACTIONS (7)
  - Sepsis [Fatal]
  - Renal failure [Fatal]
  - Amyloidosis [Fatal]
  - Incisional hernia [Fatal]
  - Abscess [Fatal]
  - Death [Fatal]
  - Pneumonia [Unknown]
